FAERS Safety Report 5749299-X (Version None)
Quarter: 2008Q2

REPORT INFORMATION
  Report Type: 
  Country: None (occurrence: None)
  Receive Date: 20080527
  Receipt Date: 20080523
  Transmission Date: 20081010
  Serious: Yes (Other)
  Sender: FDA-Public Use
  Company Number: A0729407A

PATIENT
  Age: 46 Year
  Sex: Female

DRUGS (10)
  1. ALLI [Suspect]
     Dates: start: 20080201
  2. PREVACID [Concomitant]
     Dates: start: 19930101
  3. ULTRAM [Concomitant]
  4. FLEXERIL [Concomitant]
  5. CONCERTA [Concomitant]
  6. WELLBUTRIN XL [Concomitant]
  7. CYMBALTA [Concomitant]
  8. TRAZODONE HCL [Concomitant]
  9. CPAP MACHINE [Concomitant]
  10. TEGRETOL [Concomitant]

REACTIONS (5)
  - ANIMAL BITE [None]
  - COAGULATION TIME SHORTENED [None]
  - CONTUSION [None]
  - HAEMATOMA [None]
  - HAEMORRHAGE [None]
